FAERS Safety Report 9443946 (Version 2)
Quarter: 2013Q3

REPORT INFORMATION
  Report Type: Spontaneous
  Country: US (occurrence: US)
  Receive Date: 20130807
  Receipt Date: 20130925
  Transmission Date: 20140515
  Serious: Yes (Hospitalization)
  Sender: FDA-Public Use
  Company Number: US-AMGEN-USASP2013053857

PATIENT
  Age: 32 Year
  Sex: Female

DRUGS (1)
  1. ENBREL [Suspect]
     Indication: RHEUMATOID ARTHRITIS
     Dosage: 50 MG, QWK
     Route: 065
     Dates: start: 20130401, end: 2013

REACTIONS (16)
  - Cholecystectomy [Recovered/Resolved]
  - Abdominal pain [Recovered/Resolved]
  - Back pain [Recovered/Resolved]
  - Pyrexia [Recovered/Resolved]
  - Incision site pain [Recovered/Resolved]
  - Incisional drainage [Recovered/Resolved]
  - Gastric ulcer [Recovered/Resolved]
  - Musculoskeletal pain [Recovered/Resolved]
  - Skin mass [Recovered/Resolved]
  - Dyspnoea [Unknown]
  - Neck pain [Unknown]
  - Arthralgia [Not Recovered/Not Resolved]
  - Joint stiffness [Not Recovered/Not Resolved]
  - Thirst [Recovered/Resolved]
  - Anxiety [Recovered/Resolved]
  - Alcoholism [Recovered/Resolved]
